FAERS Safety Report 9744817 (Version 1)
Quarter: 2013Q4

REPORT INFORMATION
  Report Type: Report from Study
  Country: US (occurrence: US)
  Receive Date: 20131211
  Receipt Date: 20131211
  Transmission Date: 20140711
  Serious: Yes (Other)
  Sender: FDA-Public Use
  Company Number: US-ROCHE-1314624

PATIENT
  Sex: 0

DRUGS (2)
  1. BEVACIZUMAB [Suspect]
     Indication: NEUROFIBROMATOSIS
     Route: 042
  2. BEVACIZUMAB [Suspect]
     Indication: ACOUSTIC NEUROMA

REACTIONS (2)
  - Hypertension [Recovered/Resolved]
  - Immune thrombocytopenic purpura [Recovered/Resolved]
